FAERS Safety Report 4396660-4 (Version None)
Quarter: 2004Q3

REPORT INFORMATION
  Report Type: 
  Country: None (occurrence: None)
  Receive Date: 20040708
  Receipt Date: 20040622
  Transmission Date: 20050211
  Serious: Yes (Hospitalization)
  Sender: FDA-Public Use
  Company Number: DSA_24607_2004

PATIENT
  Age: 75 Year
  Sex: Female

DRUGS (3)
  1. DILTIAZEM HYDROCHLORIDE [Suspect]
     Indication: ANGINA PECTORIS
     Dosage: 200 MG Q DAY PO
     Route: 048
     Dates: start: 20040315, end: 20040401
  2. EXELON [Concomitant]
  3. ASPIRIN [Concomitant]

REACTIONS (5)
  - AMNESIA [None]
  - HOT FLUSH [None]
  - HYPERHIDROSIS [None]
  - MALAISE [None]
  - SYNCOPE [None]
